FAERS Safety Report 15107990 (Version 2)
Quarter: 2018Q3

REPORT INFORMATION
  Report Type: Spontaneous
  Country: PT (occurrence: PT)
  Receive Date: 20180704
  Receipt Date: 20180716
  Transmission Date: 20181010
  Serious: Yes (Other)
  Sender: FDA-Public Use
  Company Number: PT-BIOGEN-2018BI00603446

PATIENT
  Age: 0 Day
  Sex: Male

DRUGS (1)
  1. PLEGRIDY [Suspect]
     Active Substance: PEGINTERFERON BETA-1A
     Indication: MATERNAL EXPOSURE TIMING UNSPECIFIED
     Route: 064
     Dates: start: 201702, end: 20170922

REACTIONS (2)
  - Foetal exposure during pregnancy [Recovered/Resolved]
  - Foetal growth restriction [Unknown]

NARRATIVE: CASE EVENT DATE: 20180524
